FAERS Safety Report 7162717-8 (Version None)
Quarter: 2010Q4

REPORT INFORMATION
  Report Type: 
  Country: None (occurrence: None)
  Receive Date: 20101215
  Receipt Date: 20091210
  Transmission Date: 20110411
  Serious: Yes (Hospitalization, Other)
  Sender: FDA-Public Use
  Company Number: JP-PFIZER INC-2009295250

PATIENT
  Age: 68 Year

DRUGS (4)
  1. ZYVOX [Suspect]
     Indication: STAPHYLOCOCCAL SEPSIS
     Dosage: 600 MG, 1X/DAY
     Route: 042
     Dates: start: 20091022, end: 20091023
  2. VANCOMYCIN [Concomitant]
     Indication: PERITONEAL DIALYSIS
     Dosage: 0.5 G, 1X/DAY
     Route: 042
     Dates: start: 20090929, end: 20091014
  3. CEFAZOLIN SODIUM [Concomitant]
     Route: 042
     Dates: start: 20091010, end: 20091015
  4. MEROPENEM [Concomitant]
     Route: 042
     Dates: start: 20091015, end: 20091019

REACTIONS (2)
  - DELIRIUM [None]
  - THROMBOCYTOPENIA [None]
